FAERS Safety Report 7546318-5 (Version None)
Quarter: 2011Q2

REPORT INFORMATION
  Report Type: 
  Country: None (occurrence: None)
  Receive Date: 20110614
  Receipt Date: 20051202
  Transmission Date: 20111010
  Serious: Yes (Hospitalization)
  Sender: FDA-Public Use
  Company Number: PHMT2005CA00741

PATIENT

DRUGS (1)
  1. CLOZAPINE [Suspect]
     Route: 065
     Dates: start: 20050811

REACTIONS (1)
  - CEREBROVASCULAR ACCIDENT [None]
